FAERS Safety Report 9553032 (Version 1)
Quarter: 2013Q2

REPORT INFORMATION
  Report Type: Spontaneous
  Country: US (occurrence: None)
  Receive Date: 20130520
  Receipt Date: 20130520
  Transmission Date: 20140414
  Serious: Yes (Life-Threatening, Other)
  Sender: FDA-Public Use
  Company Number: 1175631

PATIENT
  Age: 65 Year
  Sex: Female
  Weight: 85.59 kg

DRUGS (3)
  1. PROPOFOL [Suspect]
     Indication: SEDATION
     Dosage: 10 MG, X 1
     Route: 040
     Dates: start: 20120126, end: 20120126
  2. VERSED [Concomitant]
  3. FENTANYL CITRATE INJECTION USP (FENTANYL CITRATE) [Concomitant]

REACTIONS (4)
  - Respiratory arrest [None]
  - Atrial fibrillation [None]
  - Emergency care [None]
  - Hyperhidrosis [None]
